FAERS Safety Report 18851820 (Version 6)
Quarter: 2021Q3

REPORT INFORMATION
  Report Type: Spontaneous
  Country: BG (occurrence: BG)
  Receive Date: 20210205
  Receipt Date: 20210714
  Transmission Date: 20211014
  Serious: No
  Sender: FDA-Public Use
  Company Number: NVSC2021BG021047

PATIENT
  Age: 70 Year
  Sex: Male
  Weight: 75 kg

DRUGS (24)
  1. PACLITAXEL. [Suspect]
     Active Substance: PACLITAXEL
     Indication: NON-SMALL CELL LUNG CANCER
     Dosage: 300 MG
     Route: 065
     Dates: start: 20201002
  2. NOOTROPIL [Concomitant]
     Active Substance: PIRACETAM
     Indication: PRODUCT USED FOR UNKNOWN INDICATION
     Dosage: UNK, QD
     Route: 065
     Dates: start: 20210324, end: 20210329
  3. FLIXOTIDE [Concomitant]
     Active Substance: FLUTICASONE PROPIONATE
     Indication: PRODUCT USED FOR UNKNOWN INDICATION
     Dosage: UNK, (0.5 DAY)
     Route: 065
     Dates: start: 2017
  4. SODIUM CHLORIDE. [Concomitant]
     Active Substance: SODIUM CHLORIDE
     Indication: PRODUCT USED FOR UNKNOWN INDICATION
     Dosage: UNK, QD
     Route: 065
     Dates: start: 20210324, end: 20210329
  5. NEURITOGEN [Concomitant]
     Active Substance: DIETARY SUPPLEMENT\HERBALS
     Indication: PRODUCT USED FOR UNKNOWN INDICATION
     Dosage: UNK
     Route: 065
     Dates: start: 20210519
  6. ATEZOLIZUMAB. [Suspect]
     Active Substance: ATEZOLIZUMAB
     Dosage: 1200 MG, TIW
     Route: 042
     Dates: start: 20201022
  7. ANORO ELLIPTA [Concomitant]
     Active Substance: UMECLIDINIUM BROMIDE\VILANTEROL TRIFENATATE
     Indication: PRODUCT USED FOR UNKNOWN INDICATION
     Dosage: UNK,QD
     Route: 065
     Dates: start: 2017
  8. MANNITOL. [Concomitant]
     Active Substance: MANNITOL
     Indication: PRODUCT USED FOR UNKNOWN INDICATION
     Dosage: UNK, QD
     Route: 065
     Dates: start: 20210324, end: 20210329
  9. ATEZOLIZUMAB. [Suspect]
     Active Substance: ATEZOLIZUMAB
     Dosage: 1200 MG
     Route: 042
     Dates: start: 20200919
  10. ATEZOLIZUMAB. [Suspect]
     Active Substance: ATEZOLIZUMAB
     Dosage: 1200 MG, TIW
     Route: 042
     Dates: start: 20201208
  11. CARBOPLATIN. [Suspect]
     Active Substance: CARBOPLATIN
     Indication: NON-SMALL CELL LUNG CANCER
     Dosage: 480 MG
     Route: 065
     Dates: start: 20201002
  12. ATEZOLIZUMAB. [Suspect]
     Active Substance: ATEZOLIZUMAB
     Dosage: SUBSEQUENT DOSE RECEIVED ON 22/OCT/2020, 13/NOV/2020, 08/DEC/2020, 29/DEC/2020
     Route: 041
     Dates: start: 20201002
  13. OLSART [Concomitant]
     Indication: HYPERTENSION
     Dosage: UNK,QD
     Route: 065
     Dates: start: 202007
  14. ATEZOLIZUMAB. [Suspect]
     Active Substance: ATEZOLIZUMAB
     Indication: NON-SMALL CELL LUNG CANCER
     Dosage: 1200 MG
     Route: 042
     Dates: start: 20200910
  15. PARACETAMOL [Concomitant]
     Active Substance: ACETAMINOPHEN
     Indication: CHILLS
     Dosage: UNK, (0.5 DAY)
     Route: 065
     Dates: start: 20201001, end: 20201001
  16. CONCOR [Concomitant]
     Active Substance: BISOPROLOL FUMARATE
     Indication: HYPERTENSION
     Dosage: UNK,QD
     Route: 065
     Dates: start: 202007
  17. OXYCODONE [Concomitant]
     Active Substance: OXYCODONE
     Indication: PRODUCT USED FOR UNKNOWN INDICATION
     Dosage: UNK, (0.5 DAY)
     Route: 065
     Dates: start: 20201208
  18. CAVINTON [Concomitant]
     Active Substance: VINPOCETINE
     Indication: PRODUCT USED FOR UNKNOWN INDICATION
     Dosage: UNK, QD
     Route: 065
     Dates: start: 20210324, end: 20210329
  19. ATEZOLIZUMAB. [Suspect]
     Active Substance: ATEZOLIZUMAB
     Dosage: 1200 MG, TIW
     Route: 042
     Dates: start: 20201113
  20. BEVACIZUMAB. [Suspect]
     Active Substance: BEVACIZUMAB
     Indication: NON-SMALL CELL LUNG CANCER
     Dosage: 1100 MG
     Route: 065
     Dates: start: 20201002
  21. XARELTO [Concomitant]
     Active Substance: RIVAROXABAN
     Indication: ARRHYTHMIA
     Dosage: UNK, (0.5 DAY)
     Route: 065
     Dates: start: 20201106
  22. OXYCODONE [Concomitant]
     Active Substance: OXYCODONE
     Dosage: UNK
     Route: 065
     Dates: start: 20210302
  23. DEXAMETHASONE. [Concomitant]
     Active Substance: DEXAMETHASONE
     Indication: PRODUCT USED FOR UNKNOWN INDICATION
     Dosage: UNK
     Route: 065
     Dates: start: 20210324, end: 20210329
  24. ATEZOLIZUMAB. [Suspect]
     Active Substance: ATEZOLIZUMAB
     Dosage: 1200 MG, TIW
     Route: 042
     Dates: start: 20201229

REACTIONS (1)
  - Polyarthritis [Not Recovered/Not Resolved]

NARRATIVE: CASE EVENT DATE: 20201215
